FAERS Safety Report 5282878-5 (Version None)
Quarter: 2007Q1

REPORT INFORMATION
  Report Type: 
  Country: None (occurrence: None)
  Receive Date: 20070327
  Receipt Date: 20070316
  Transmission Date: 20070707
  Serious: Yes (Other)
  Sender: FDA-Public Use
  Company Number: GXKR2007GB02639

PATIENT
  Age: 77 Year
  Sex: Male
  Weight: 70 kg

DRUGS (11)
  1. FLUOXETINE HYDROCHLORIDE [Suspect]
     Indication: DEPRESSION
     Dosage: 1 DF, QD, ORAL
     Route: 048
     Dates: start: 19911018, end: 20070305
  2. ADCAL-D3 (CALCIUM CARBONATE, COLECALCIFEROL) [Concomitant]
  3. ASPIRIN [Concomitant]
  4. BACLOFEN [Concomitant]
  5. DIPYRIDAMOLE [Concomitant]
  6. GLICLAZIDE (GLICLAZIDE) [Concomitant]
  7. METFORMIN HCL [Concomitant]
  8. RAMIPRIL [Concomitant]
  9. RANITIDINE [Concomitant]
  10. SIMVASTATIN [Concomitant]
  11. TERAZOSIN HYDROCHLORIDE [Concomitant]

REACTIONS (4)
  - INAPPROPRIATE SCHEDULE OF DRUG ADMINISTRATION [None]
  - INCORRECT DOSE ADMINISTERED [None]
  - TREATMENT NONCOMPLIANCE [None]
  - VISION BLURRED [None]
